FAERS Safety Report 5408683-4 (Version None)
Quarter: 2007Q3

REPORT INFORMATION
  Report Type: 
  Country: None (occurrence: None)
  Receive Date: 20070808
  Receipt Date: 20070802
  Transmission Date: 20080115
  Serious: Yes (Hospitalization)
  Sender: FDA-Public Use
  Company Number: A0665390A

PATIENT
  Age: 61 Year
  Sex: Female

DRUGS (8)
  1. ADVAIR DISKUS 100/50 [Suspect]
     Indication: ASTHMA
     Dosage: 1PUFF TWICE PER DAY
     Route: 055
     Dates: start: 19960101, end: 20061201
  2. COREG [Suspect]
     Route: 048
     Dates: start: 20040801, end: 20061201
  3. FOSAMAX [Suspect]
     Indication: DRUG USE FOR UNKNOWN INDICATION
     Route: 065
     Dates: end: 20061201
  4. LISINOPRIL [Concomitant]
     Dates: end: 20061201
  5. ASPIRIN [Concomitant]
  6. UNKNOWN MEDICATION [Concomitant]
     Dates: end: 20061201
  7. TRILEPTAL [Concomitant]
     Dates: end: 20061201
  8. PHENOBARBITAL TAB [Concomitant]
     Dates: end: 20061201

REACTIONS (11)
  - BLOOD SODIUM DECREASED [None]
  - CARDIAC DISORDER [None]
  - CARDIAC FLUTTER [None]
  - CARDIAC MURMUR [None]
  - CATARACT [None]
  - DEHYDRATION [None]
  - FOOT FRACTURE [None]
  - HAND FRACTURE [None]
  - INJURY [None]
  - PALPITATIONS [None]
  - SKIN LACERATION [None]
